FAERS Safety Report 8380260-5 (Version None)
Quarter: 2012Q2

REPORT INFORMATION
  Report Type: 
  Country: None (occurrence: None)
  Receive Date: 20120523
  Receipt Date: 20120518
  Transmission Date: 20120825
  Serious: Yes (Hospitalization, Other)
  Sender: FDA-Public Use
  Company Number: PHHY2012AR032864

PATIENT
  Sex: Male

DRUGS (4)
  1. ENALAPRIL MALEATE [Concomitant]
  2. INSULIN [Concomitant]
  3. GILENYA [Suspect]
     Indication: MULTIPLE SCLEROSIS
     Dosage: UNK UKN, UNK
     Route: 048
     Dates: start: 20111201
  4. CARVEDILOL [Concomitant]

REACTIONS (2)
  - PRURITUS [None]
  - DIABETES MELLITUS [None]
